FAERS Safety Report 11228022 (Version 1)
Quarter: 2015Q2

REPORT INFORMATION
  Report Type: Spontaneous
  Country: GB (occurrence: GB)
  Receive Date: 20150630
  Receipt Date: 20150630
  Transmission Date: 20150821
  Serious: Yes (Hospitalization)
  Sender: FDA-Public Use
  Company Number: GB-PFIZER INC-2015177579

PATIENT
  Age: 36 Year
  Sex: Female

DRUGS (3)
  1. METHYLPREDNISOLONE SODIUM SUCCINATE. [Suspect]
     Active Substance: METHYLPREDNISOLONE SODIUM SUCCINATE
     Indication: MULTIPLE SCLEROSIS
     Dosage: 3-DAY COURSE
     Route: 042
  2. SOLU-MEDRONE [Suspect]
     Active Substance: METHYLPREDNISOLONE SODIUM SUCCINATE
     Indication: MULTIPLE SCLEROSIS
     Dosage: 1 G, REPEATED ON 3 CONSECUTIVE DAYS
     Route: 042
  3. DEXTROSE. [Concomitant]
     Active Substance: DEXTROSE
     Indication: MULTIPLE SCLEROSIS
     Dosage: 250ML OF 5% DEXTROSE SOLUTION
     Route: 042

REACTIONS (1)
  - Hepatotoxicity [Recovering/Resolving]
